FAERS Safety Report 5480984-3 (Version None)
Quarter: 2007Q4

REPORT INFORMATION
  Report Type: 
  Country: None (occurrence: None)
  Receive Date: 20071004
  Receipt Date: 20070918
  Transmission Date: 20080405
  Serious: Yes (Other)
  Sender: FDA-Public Use
  Company Number: URSO-2007-180

PATIENT
  Age: 62 Year
  Sex: Female

DRUGS (4)
  1. URSO (URSODEOXYCHOLIC) [Suspect]
     Dosage: 1000 MG
     Route: 048
     Dates: start: 20060501
  2. CALCIUM [Concomitant]
  3. VITAMIN D [Concomitant]
  4. MAGNESIUM SULFATE [Concomitant]

REACTIONS (2)
  - BREAST MASS [None]
  - WEIGHT INCREASED [None]
